FAERS Safety Report 9770746 (Version 3)
Quarter: 2014Q2

REPORT INFORMATION
  Report Type: Spontaneous
  Country: US (occurrence: US)
  Receive Date: 20131218
  Receipt Date: 20140416
  Transmission Date: 20141212
  Serious: Yes (Other)
  Sender: FDA-Public Use
  Company Number: US-009507513-1312USA006906

PATIENT
  Sex: Female
  Weight: 109.75 kg

DRUGS (21)
  1. FOSAMAX [Suspect]
     Dosage: UNK
     Route: 048
     Dates: start: 1985
  2. PROVENTIL [Suspect]
     Dosage: 1 PRN
  3. ASMANEX TWISTHALER [Suspect]
     Dosage: 1 TWICE DAILY
  4. NEXIUM [Suspect]
     Dosage: 1 ONCE DAILY
     Route: 048
  5. BONIVA [Concomitant]
     Dosage: 1 AS DIRECTED PER PACK
  6. KLONOPIN [Concomitant]
     Dosage: 1 TWICE DAILY
  7. LOPRESSOR [Concomitant]
     Dosage: 1 TWICE DAILY
  8. NITROSTAT [Concomitant]
     Dosage: 1 DF, UNK
  9. SYNTHROID [Concomitant]
     Dosage: 1 ONCE DAILY
  10. VASOTEC [Concomitant]
     Dosage: 1 TWICE DAILY
  11. ZOLOFT [Concomitant]
     Dosage: 1 AT BEDTIME
  12. ACETAMINOPHEN (+) HYDROCODONE BITARTRATE [Concomitant]
     Dosage: 1 FOUR TIMES A DAY
  13. LYRICA [Concomitant]
     Dosage: 1 TWICE DAILY
  14. SYMBICORT [Concomitant]
     Dosage: 2 TWICE DAILY
  15. ASPIRIN [Concomitant]
     Dosage: 1 ONCE DAILY
  16. B COMPLETE [Concomitant]
     Dosage: 1 ONCE DAILY
  17. CALTRATE (CALCIUM CARBONATE) [Concomitant]
     Dosage: 1 TWICE DAILY
  18. CENTRUM (MINERALS (UNSPECIFIED) (+) VITAMINS (UNSPECIFIED)) [Concomitant]
     Dosage: 1 TWICE DAILY
  19. FISH OIL [Concomitant]
     Dosage: 1 ONCE DAILY
  20. MAGNESIUM (UNSPECIFIED) [Concomitant]
     Dosage: 1 ONCE DAILY
  21. VITAMIN D3 [Concomitant]
     Dosage: 1 ONCE DAILY

REACTIONS (10)
  - Hodgkin^s disease [Unknown]
  - Aneurysm [Unknown]
  - Essential hypertension [Unknown]
  - Depression [Unknown]
  - Osteoporosis [Unknown]
  - Gastrooesophageal reflux disease [Unknown]
  - Hypothyroidism [Unknown]
  - Nervous system disorder [Unknown]
  - Hypersensitivity [Unknown]
  - Nausea [Recovered/Resolved]
